FAERS Safety Report 8111511-X (Version None)
Quarter: 2012Q1

REPORT INFORMATION
  Report Type: 
  Country: None (occurrence: None)
  Receive Date: 20120202
  Receipt Date: 20120202
  Transmission Date: 20120608
  Serious: Yes (Other)
  Sender: FDA-Public Use
  Company Number: None

PATIENT
  Age: 73 Year
  Sex: Male

DRUGS (10)
  1. NORTRIPTYLINE HCL [Concomitant]
  2. ASPIRIN [Concomitant]
  3. TERAZOSIN HCL [Concomitant]
  4. REVLIMID [Concomitant]
  5. NOVOLIN N [Concomitant]
  6. GLIPIZIDE [Concomitant]
  7. REVLIMID [Suspect]
     Indication: MULTIPLE MYELOMA
     Dosage: 10MG QD ORALLY
     Route: 048
     Dates: start: 20110901, end: 20120101
  8. DECADRON [Concomitant]
  9. METFORMIN HCL [Concomitant]
  10. AREDIA [Concomitant]

REACTIONS (2)
  - NEUROPATHY PERIPHERAL [None]
  - RASH [None]
